FAERS Safety Report 17745459 (Version 6)
Quarter: 2022Q3

REPORT INFORMATION
  Report Type: Other
  Country: CA (occurrence: CA)
  Receive Date: 20200505
  Receipt Date: 20220809
  Transmission Date: 20221027
  Serious: Yes (Hospitalization)
  Sender: FDA-Public Use
  Company Number: CA-002147023-NVSC2020CA119157

PATIENT
  Age: 41 Year
  Sex: Female

DRUGS (9)
  1. XOLAIR [Suspect]
     Active Substance: OMALIZUMAB
     Indication: Chronic spontaneous urticaria
     Route: 058
     Dates: start: 20200429
  2. XOLAIR [Suspect]
     Active Substance: OMALIZUMAB
     Route: 058
     Dates: start: 20200914
  3. XOLAIR [Suspect]
     Active Substance: OMALIZUMAB
     Route: 058
  4. INFLUENZA VIRUS VACCINE [Suspect]
     Active Substance: INFLUENZA VIRUS VACCINE
     Indication: Product used for unknown indication
     Route: 065
  5. METHOTREXATE [Concomitant]
     Active Substance: METHOTREXATE
     Indication: Product used for unknown indication
     Route: 048
     Dates: start: 20191218
  6. SINGULAIR [Concomitant]
     Active Substance: MONTELUKAST SODIUM
     Indication: Product used for unknown indication
     Dosage: UNK, QD
     Route: 048
     Dates: start: 2010
  7. CETIRIZINE HYDROCHLORIDE [Concomitant]
     Active Substance: CETIRIZINE HYDROCHLORIDE
     Indication: Product used for unknown indication
     Dosage: 10 OT
     Route: 048
  8. RUPATADINE FUMARATE [Concomitant]
     Active Substance: RUPATADINE FUMARATE
     Indication: Product used for unknown indication
     Dosage: UNK
     Route: 048
     Dates: start: 20190422
  9. COSENTYX [Concomitant]
     Active Substance: SECUKINUMAB
     Dates: start: 20200914

REACTIONS (7)
  - Anaphylactic shock [Recovering/Resolving]
  - Paraesthesia [Recovering/Resolving]
  - Nasal congestion [Unknown]
  - Oropharyngeal pain [Unknown]
  - Vocal cord disorder [Unknown]
  - Urticaria [Unknown]
  - Influenza [Unknown]

NARRATIVE: CASE EVENT DATE: 20200429
